FAERS Safety Report 26216876 (Version 1)
Quarter: 2025Q4

REPORT INFORMATION
  Report Type: Report from Study
  Country: JP (occurrence: JP)
  Receive Date: 20251231
  Receipt Date: 20251231
  Transmission Date: 20260117
  Serious: Yes (Hospitalization, Other)
  Sender: ROCHE
  Company Number: JP-CHUGAI-2025000487

PATIENT
  Age: 21 Year
  Sex: Male
  Weight: 78.7 kg

DRUGS (15)
  1. PIASKY [Suspect]
     Active Substance: CROVALIMAB-AKKZ
     Indication: Paroxysmal nocturnal haemoglobinuria
     Dosage: 680 MILLIGRAM, ONCE/4WEEKS
     Route: 058
  2. PIASKY [Suspect]
     Active Substance: CROVALIMAB-AKKZ
     Dosage: 1000MILLIGRAM/DAY
     Route: 042
     Dates: start: 20241016, end: 20241016
  3. PIASKY [Suspect]
     Active Substance: CROVALIMAB-AKKZ
     Dosage: 680 MILLIGRAM, ONCE/4WEEKS
     Route: 058
  4. PIASKY [Suspect]
     Active Substance: CROVALIMAB-AKKZ
     Dosage: 680 MILLIGRAM, ONCE/4WEEKS
     Route: 058
  5. PIASKY [Suspect]
     Active Substance: CROVALIMAB-AKKZ
     Dosage: 680 MILLIGRAM, ONCE/4WEEKS
     Route: 058
  6. PIASKY [Suspect]
     Active Substance: CROVALIMAB-AKKZ
     Dosage: 680 MILLIGRAM, ONCE/4WEEKS
     Route: 058
  7. PIASKY [Suspect]
     Active Substance: CROVALIMAB-AKKZ
     Dosage: 680 MILLIGRAM, ONCE/4WEEKS
     Route: 058
  8. PIASKY [Suspect]
     Active Substance: CROVALIMAB-AKKZ
     Dosage: 680 MILLIGRAM, ONCE/4WEEKS
     Route: 058
  9. PIASKY [Suspect]
     Active Substance: CROVALIMAB-AKKZ
     Dosage: 680 MILLIGRAM, ONCE/4WEEKS
     Route: 058
  10. PIASKY [Suspect]
     Active Substance: CROVALIMAB-AKKZ
     Dosage: 680 MILLIGRAM, ONCE/4WEEKS
     Route: 058
  11. PIASKY [Suspect]
     Active Substance: CROVALIMAB-AKKZ
     Dosage: 680 MILLIGRAM, ONCE/4WEEKS
     Route: 058
  12. PIASKY [Suspect]
     Active Substance: CROVALIMAB-AKKZ
     Dosage: 680 MILLIGRAM, ONCE/4WEEKS
     Route: 058
  13. PIASKY [Suspect]
     Active Substance: CROVALIMAB-AKKZ
  14. LEVOFLOXACIN HEMIHYDRATE [Concomitant]
     Active Substance: LEVOFLOXACIN
     Route: 048
  15. GARENOXACIN MESYLATE [Concomitant]
     Active Substance: GARENOXACIN MESYLATE
     Dates: start: 20250109, end: 20250112

REACTIONS (5)
  - Infection [Recovered/Resolved]
  - Pyrexia [Recovered/Resolved]
  - Pneumonia [Unknown]
  - Urinary tract infection [Unknown]
  - Platelet count increased [Unknown]

NARRATIVE: CASE EVENT DATE: 20250402
